FAERS Safety Report 20916188 (Version 3)
Quarter: 2024Q1

REPORT INFORMATION
  Report Type: Spontaneous
  Country: US (occurrence: US)
  Receive Date: 20220604
  Receipt Date: 20240302
  Transmission Date: 20240409
  Serious: No
  Sender: FDA-Public Use
  Company Number: US-SA-SAC20220601001044

PATIENT
  Age: 44 Year
  Sex: Female

DRUGS (1)
  1. DUPIXENT [Suspect]
     Active Substance: DUPILUMAB
     Indication: Asthma
     Dosage: 200 MG, QOW
     Route: 058
     Dates: start: 202204

REACTIONS (10)
  - Headache [Recovered/Resolved]
  - Dysgeusia [Recovered/Resolved]
  - Headache [Unknown]
  - Muscle spasms [Unknown]
  - Pain [Unknown]
  - Dizziness [Recovered/Resolved]
  - Dizziness [Unknown]
  - Injection site pain [Unknown]
  - Asthma [Recovering/Resolving]
  - Product dose omission issue [Unknown]

NARRATIVE: CASE EVENT DATE: 20220719
